FAERS Safety Report 18559397 (Version 1)
Quarter: 2020Q4

REPORT INFORMATION
  Report Type: Spontaneous
  Country: US (occurrence: US)
  Receive Date: 20201130
  Receipt Date: 20201130
  Transmission Date: 20210114
  Serious: No
  Sender: FDA-Public Use
  Company Number: US-USWM, LLC-UWM202011-000050

PATIENT
  Age: 51 Year
  Sex: Female

DRUGS (6)
  1. LEXAPRO [Concomitant]
     Active Substance: ESCITALOPRAM OXALATE
     Dosage: NOT PROVIDED
  2. NEURONTIN [Concomitant]
     Active Substance: GABAPENTIN
     Indication: NEURALGIA
     Dosage: NOT PROVIDED
  3. LUCEMYRA [Suspect]
     Active Substance: LOFEXIDINE
     Dates: start: 202011
  4. RIZATRIPTAN. [Concomitant]
     Active Substance: RIZATRIPTAN
     Indication: MIGRAINE
     Dosage: NOT PROVIDED
  5. LUCEMYRA [Suspect]
     Active Substance: LOFEXIDINE
     Indication: PRODUCT USED FOR UNKNOWN INDICATION
     Dosage: 36 TABLETS
     Dates: start: 20201030, end: 20201104
  6. CYMBALTA [Concomitant]
     Active Substance: DULOXETINE HYDROCHLORIDE
     Indication: RESTLESS LEGS SYNDROME
     Dosage: NOT PROVIDED

REACTIONS (3)
  - Product availability issue [Unknown]
  - Intentional product use issue [Unknown]
  - Withdrawal syndrome [Not Recovered/Not Resolved]

NARRATIVE: CASE EVENT DATE: 202011
